FAERS Safety Report 24116746 (Version 1)
Quarter: 2024Q3

REPORT INFORMATION
  Report Type: Spontaneous
  Country: US (occurrence: US)
  Receive Date: 20240722
  Receipt Date: 20240722
  Transmission Date: 20241017
  Serious: No
  Sender: ASTELLAS
  Company Number: US-ASTELLAS-2024US013443

PATIENT
  Age: 80 Year
  Sex: Male

DRUGS (4)
  1. MYRBETRIQ [Suspect]
     Active Substance: MIRABEGRON
     Indication: Incontinence
     Route: 048
     Dates: start: 20240414
  2. MYRBETRIQ [Suspect]
     Active Substance: MIRABEGRON
     Route: 048
  3. PREDNISONE [Suspect]
     Active Substance: PREDNISONE
     Indication: Urticaria
     Dosage: UNK UNK, UNKNOWN FREQ.
     Route: 048
  4. PREDNISONE [Suspect]
     Active Substance: PREDNISONE
     Indication: Lip swelling

REACTIONS (5)
  - Urinary incontinence [Recovered/Resolved]
  - Lip swelling [Recovered/Resolved]
  - Blood pressure increased [Recovered/Resolved]
  - Urticaria cholinergic [Recovered/Resolved]
  - Acute stress disorder [Recovered/Resolved]

NARRATIVE: CASE EVENT DATE: 20240502
